FAERS Safety Report 19445600 (Version 2)
Quarter: 2021Q2

REPORT INFORMATION
  Report Type: Report from Study
  Country: GB (occurrence: GB)
  Receive Date: 20210622
  Receipt Date: 20210630
  Transmission Date: 20210717
  Serious: Yes (Other)
  Sender: FDA-Public Use
  Company Number: GB-ORION CORPORATION ORION PHARMA-21_00014782

PATIENT
  Age: 60 Year
  Sex: Female

DRUGS (3)
  1. IMRALDI [Suspect]
     Active Substance: ADALIMUMAB
     Indication: RHEUMATOID ARTHRITIS
     Route: 058
     Dates: start: 20200914
  2. METHOTREXATE (TRADE NAME UNKNOWN) [Suspect]
     Active Substance: METHOTREXATE
     Indication: PRODUCT USED FOR UNKNOWN INDICATION
     Route: 048
  3. ORAMORPH [Suspect]
     Active Substance: MORPHINE SULFATE
     Indication: BREAKTHROUGH PAIN
     Route: 065

REACTIONS (9)
  - Mood swings [Unknown]
  - Poor quality sleep [Unknown]
  - Rheumatoid arthritis [Unknown]
  - Increased appetite [Unknown]
  - Somnolence [Unknown]
  - Frustration tolerance decreased [Unknown]
  - Discomfort [Unknown]
  - Cellulitis [Unknown]
  - Tearfulness [Unknown]
